FAERS Safety Report 9059680 (Version 1)
Quarter: 2013Q1

REPORT INFORMATION
  Report Type: Spontaneous
  Country: US (occurrence: None)
  Receive Date: 20130206
  Receipt Date: 20130206
  Transmission Date: 20140127
  Serious: Yes (Other)
  Sender: FDA-Public Use
  Company Number: None

PATIENT
  Age: 61 Year
  Sex: Male
  Weight: 63.6 kg

DRUGS (1)
  1. LINEZOLID [Suspect]
     Route: 048
     Dates: start: 20120801, end: 20120928

REACTIONS (2)
  - Anaemia [None]
  - Aplasia pure red cell [None]
